FAERS Safety Report 25507649 (Version 3)
Quarter: 2025Q3

REPORT INFORMATION
  Report Type: Report from Study
  Country: JP (occurrence: JP)
  Receive Date: 20250703
  Receipt Date: 20250806
  Transmission Date: 20251021
  Serious: Yes (Hospitalization)
  Sender: ASTELLAS
  Company Number: JP-ASTELLAS-2025-AER-009816

PATIENT
  Age: 71 Year
  Sex: Male
  Weight: 66 kg

DRUGS (43)
  1. VYLOY [Suspect]
     Active Substance: ZOLBETUXIMAB-CLZB
     Indication: Gastric cancer recurrent
     Route: 042
     Dates: start: 20250206, end: 20250206
  2. VYLOY [Suspect]
     Active Substance: ZOLBETUXIMAB-CLZB
     Route: 042
     Dates: start: 20250227, end: 20250227
  3. VYLOY [Suspect]
     Active Substance: ZOLBETUXIMAB-CLZB
     Route: 042
     Dates: start: 20250528, end: 20250528
  4. VYLOY [Suspect]
     Active Substance: ZOLBETUXIMAB-CLZB
     Route: 042
     Dates: start: 20250618, end: 20250618
  5. VYLOY [Suspect]
     Active Substance: ZOLBETUXIMAB-CLZB
     Route: 042
  6. CAPECITABINE [Suspect]
     Active Substance: CAPECITABINE
     Indication: Product used for unknown indication
     Route: 065
     Dates: start: 20250206, end: 20250227
  7. OXALIPLATIN [Suspect]
     Active Substance: OXALIPLATIN
     Indication: Product used for unknown indication
     Route: 065
     Dates: start: 20250206, end: 20250227
  8. OXALIPLATIN [Suspect]
     Active Substance: OXALIPLATIN
     Route: 065
     Dates: start: 20250528
  9. LAC-B Granular Powder N [Concomitant]
     Indication: Product used for unknown indication
     Route: 048
     Dates: start: 20230126, end: 20250319
  10. LAC-B Granular Powder N [Concomitant]
     Indication: Diarrhoea
     Route: 048
     Dates: start: 20250618
  11. Lantus XR Injection SoloStar [Concomitant]
     Indication: Product used for unknown indication
     Route: 065
     Dates: start: 20250204, end: 20250326
  12. Insulin Lispro BS SoloStar Injection [Concomitant]
     Indication: Product used for unknown indication
     Route: 065
     Dates: start: 20250204, end: 20250326
  13. VONOPRAZAN FUMARATE [Concomitant]
     Active Substance: VONOPRAZAN FUMARATE
     Indication: Product used for unknown indication
     Route: 048
     Dates: start: 2023
  14. PALONOSETRON [Concomitant]
     Active Substance: PALONOSETRON
     Indication: Prophylaxis
     Route: 065
  15. PALONOSETRON [Concomitant]
     Active Substance: PALONOSETRON
     Route: 065
  16. PALONOSETRON [Concomitant]
     Active Substance: PALONOSETRON
     Route: 065
  17. PALONOSETRON [Concomitant]
     Active Substance: PALONOSETRON
     Route: 065
  18. FOSNETUPITANT [Concomitant]
     Active Substance: FOSNETUPITANT
     Indication: Prophylaxis
     Route: 065
  19. FOSNETUPITANT [Concomitant]
     Active Substance: FOSNETUPITANT
     Route: 065
  20. FOSNETUPITANT [Concomitant]
     Active Substance: FOSNETUPITANT
     Route: 065
  21. FOSNETUPITANT [Concomitant]
     Active Substance: FOSNETUPITANT
     Route: 065
  22. DEXAMETHASONE [Concomitant]
     Active Substance: DEXAMETHASONE
     Indication: Prophylaxis
     Route: 065
  23. DEXAMETHASONE [Concomitant]
     Active Substance: DEXAMETHASONE
     Route: 065
  24. CHLORPHENIRAMINE [Concomitant]
     Active Substance: CHLORPHENIRAMINE
     Indication: Prophylaxis
     Route: 065
  25. CHLORPHENIRAMINE [Concomitant]
     Active Substance: CHLORPHENIRAMINE
     Route: 065
  26. CHLORPHENIRAMINE [Concomitant]
     Active Substance: CHLORPHENIRAMINE
     Route: 065
  27. CHLORPHENIRAMINE [Concomitant]
     Active Substance: CHLORPHENIRAMINE
     Route: 065
  28. Metoclopramide tablet 5mg [Concomitant]
     Indication: Vomiting
     Route: 048
     Dates: start: 20250212, end: 20250220
  29. Metoclopramide tablet 5mg [Concomitant]
     Indication: Nausea
     Route: 048
     Dates: start: 20250220, end: 20250226
  30. AMLODIPINE [Concomitant]
     Active Substance: AMLODIPINE BESYLATE
     Indication: Product used for unknown indication
     Route: 048
     Dates: end: 20250319
  31. Pregabalin Capsules 75mg [Concomitant]
     Indication: Product used for unknown indication
     Route: 048
  32. Magnesium Oxide Tablets 250mg [Concomitant]
     Indication: Product used for unknown indication
     Route: 048
     Dates: end: 20250226
  33. Pirenoxine ophthalmic suspension 0.005% [Concomitant]
     Indication: Product used for unknown indication
     Route: 061
  34. Miopin ophthalmic solution 5mL [Concomitant]
     Indication: Product used for unknown indication
     Route: 061
  35. Tradiance Combination Tablets AP [Concomitant]
     Indication: Product used for unknown indication
     Route: 048
     Dates: end: 20250319
  36. METFORMIN HYDROCHLORIDE [Concomitant]
     Active Substance: METFORMIN HYDROCHLORIDE
     Indication: Product used for unknown indication
     Route: 048
     Dates: end: 20250319
  37. THYRADIN S tablet 25 ug [Concomitant]
     Indication: Product used for unknown indication
     Route: 048
     Dates: start: 20250211
  38. MOVICOL Combination internal medicine HD [Concomitant]
     Indication: Product used for unknown indication
     Dosage: 1 PACKET
     Route: 048
     Dates: start: 20250227, end: 20250405
  39. GATIFLO OPHTHALMIC SOLUTION 0.3? [Concomitant]
     Indication: Product used for unknown indication
     Route: 061
     Dates: start: 2025
  40. NOVAMIN tablet 5 mg [Concomitant]
     Indication: Nausea
     Route: 048
     Dates: start: 20250227, end: 20250319
  41. METOCLOPRAMIDE [Concomitant]
     Active Substance: METOCLOPRAMIDE
     Indication: Product used for unknown indication
     Route: 065
  42. DEXAMETHASONE [Concomitant]
     Active Substance: DEXAMETHASONE
     Indication: Prophylaxis
     Route: 065
  43. DEXAMETHASONE [Concomitant]
     Active Substance: DEXAMETHASONE
     Route: 065

REACTIONS (9)
  - Staphylococcal bacteraemia [Recovered/Resolved]
  - Pneumonia aspiration [Recovered/Resolved]
  - Nausea [Not Recovered/Not Resolved]
  - Decreased appetite [Recovering/Resolving]
  - Nausea [Recovering/Resolving]
  - Vomiting [Recovered/Resolved]
  - Decreased appetite [Recovered/Resolved]
  - Nausea [Recovered/Resolved]
  - Fall [Unknown]

NARRATIVE: CASE EVENT DATE: 20250210
